FAERS Safety Report 11068488 (Version 1)
Quarter: 2015Q2

REPORT INFORMATION
  Report Type: Spontaneous
  Country: US (occurrence: None)
  Receive Date: 20150424
  Receipt Date: 20150424
  Transmission Date: 20150821
  Serious: Yes (Life-Threatening, Other)
  Sender: FDA-Public Use
  Company Number: None

PATIENT
  Age: 28 Year
  Sex: Male
  Weight: 57.15 kg

DRUGS (1)
  1. DIAZEPAM. [Suspect]
     Active Substance: DIAZEPAM
     Indication: MUSCLE SPASMS
     Route: 048

REACTIONS (2)
  - Seizure [None]
  - Contusion [None]

NARRATIVE: CASE EVENT DATE: 20150321
